FAERS Safety Report 11529404 (Version 1)
Quarter: 2015Q3

REPORT INFORMATION
  Report Type: Spontaneous
  Country: US (occurrence: None)
  Receive Date: 20150918
  Receipt Date: 20150918
  Transmission Date: 20151125
  Serious: Yes (Life-Threatening, Disabling)
  Sender: FDA-Public Use
  Company Number: None

PATIENT
  Age: 32 Year
  Sex: Female
  Weight: 88.45 kg

DRUGS (4)
  1. RANITIDINE [Concomitant]
     Active Substance: RANITIDINE\RANITIDINE HYDROCHLORIDE
  2. IMITREX [Concomitant]
     Active Substance: SUMATRIPTAN\SUMATRIPTAN SUCCINATE
  3. LEVOFLOXACIN. [Suspect]
     Active Substance: LEVOFLOXACIN
     Indication: SINUSITIS
     Route: 048
     Dates: start: 20150831, end: 20150902
  4. METOPROLOL [Concomitant]
     Active Substance: METOPROLOL

REACTIONS (17)
  - Hallucination [None]
  - Ageusia [None]
  - Sensory loss [None]
  - Paralysis [None]
  - Arthralgia [None]
  - Musculoskeletal stiffness [None]
  - Tendon disorder [None]
  - Pyrexia [None]
  - Decreased appetite [None]
  - Psychotic disorder [None]
  - Depression [None]
  - Depersonalisation [None]
  - Disturbance in attention [None]
  - Anxiety [None]
  - Myalgia [None]
  - Suicidal ideation [None]
  - Loss of bladder sensation [None]

NARRATIVE: CASE EVENT DATE: 20150902
